FAERS Safety Report 11405178 (Version 1)
Quarter: 2015Q3

REPORT INFORMATION
  Report Type: Spontaneous
  Country: JP (occurrence: JP)
  Receive Date: 20150821
  Receipt Date: 20150821
  Transmission Date: 20151125
  Serious: Yes (Other)
  Sender: FDA-Public Use
  Company Number: JP-FRESENIUS KABI-FK201503998

PATIENT
  Age: 58 Year
  Sex: Female

DRUGS (5)
  1. DOXORUBICIN [Suspect]
     Active Substance: DOXORUBICIN
     Indication: HODGKIN^S DISEASE
  2. VINBLASTINE (MANUFACTURER UNKNOWN) [Suspect]
     Active Substance: VINBLASTINE
     Indication: HODGKIN^S DISEASE
     Route: 065
  3. DACARBAZINE (MANUFACTURER UNKNOWN) (DACARBAZINE) (DACARBAZINE) [Suspect]
     Active Substance: DACARBAZINE
     Indication: HODGKIN^S DISEASE
     Route: 065
  4. HYDROXYUREA. [Concomitant]
     Active Substance: HYDROXYUREA
  5. BLEOMYCIN [Suspect]
     Active Substance: BLEOMYCIN SULFATE
     Indication: HODGKIN^S DISEASE
     Route: 065

REACTIONS (10)
  - Synovitis [None]
  - Acute myeloid leukaemia [Recovered/Resolved]
  - Acidosis [None]
  - Multi-organ failure [None]
  - Myelodysplastic syndrome [None]
  - Interstitial lung disease [None]
  - Panniculitis [None]
  - Disseminated intravascular coagulation [None]
  - Cystitis [None]
  - Septic shock [None]
